FAERS Safety Report 4764323-9 (Version None)
Quarter: 2005Q3

REPORT INFORMATION
  Report Type: 
  Country: None (occurrence: None)
  Receive Date: 20050906
  Receipt Date: 20050823
  Transmission Date: 20060218
  Serious: Yes (Hospitalization)
  Sender: FDA-Public Use
  Company Number: 2005119505

PATIENT
  Age: 67 Year
  Sex: Female

DRUGS (3)
  1. DETROL LA [Suspect]
     Indication: HYPERTONIC BLADDER
     Dosage: 4 MG (4 MG, 1 IN 1 D), ORAL
     Route: 048
  2. LOTENSIN [Concomitant]
  3. SYNTHROID [Concomitant]

REACTIONS (9)
  - ANKLE FRACTURE [None]
  - DRUG INEFFECTIVE [None]
  - FALL [None]
  - HEART RATE INCREASED [None]
  - LOWER LIMB FRACTURE [None]
  - NERVE COMPRESSION [None]
  - NERVE INJURY [None]
  - UNDERDOSE [None]
  - URINARY INCONTINENCE [None]
